FAERS Safety Report 6773406-3 (Version None)
Quarter: 2010Q2

REPORT INFORMATION
  Report Type: 
  Country: None (occurrence: None)
  Receive Date: 20100616
  Receipt Date: 20100608
  Transmission Date: 20101027
  Serious: Yes (Death)
  Sender: FDA-Public Use
  Company Number: JP-ABBOTT-10P-087-0650757-00

PATIENT
  Age: 84 Year
  Sex: Male

DRUGS (9)
  1. LEUPROLIDE ACETATE [Suspect]
     Indication: PROSTATE CANCER STAGE IV
     Route: 058
     Dates: start: 20080307, end: 20090314
  2. BLOPRESS [Concomitant]
     Indication: HYPERTENSION
     Dosage: DAILY DOSE: 4MG
     Route: 048
     Dates: end: 20090528
  3. BICALUTAMIDE [Concomitant]
     Indication: PROSTATE CANCER STAGE IV
     Route: 048
     Dates: start: 20080918, end: 20081225
  4. CHLORMADINONE ACETATE TAB [Concomitant]
     Indication: PROSTATE CANCER STAGE IV
     Dosage: DAILY DOSE: 100MG
     Route: 048
     Dates: start: 20071010, end: 20080918
  5. ESTRAMUSTINE PHOSPHATE SODIUM [Concomitant]
     Indication: PROSTATE CANCER STAGE IV
     Dosage: DAILY DOSE: 560MG
     Route: 048
     Dates: start: 20081229, end: 20090528
  6. DETRUSITOL [Concomitant]
     Indication: HYPERTONIC BLADDER
     Dosage: DAILY DOSE: 4MG
     Route: 048
     Dates: start: 20080307, end: 20090528
  7. MYSLEE [Concomitant]
     Indication: INSOMNIA
     Dosage: DAILY DOSE: 5MG
     Route: 048
     Dates: end: 20090528
  8. OXYCONTIN [Concomitant]
     Indication: CANCER PAIN
     Dosage: DAILY DOSE: 5MG
     Route: 048
     Dates: start: 20080617, end: 20090528
  9. MAGNESIUM OXIDE [Concomitant]
     Indication: CONSTIPATION
     Dosage: DAILY DOSE: 2GM
     Route: 048
     Dates: start: 20081211, end: 20090115

REACTIONS (1)
  - PROSTATE CANCER [None]
